FAERS Safety Report 19090130 (Version 1)
Quarter: 2021Q2

REPORT INFORMATION
  Report Type: Spontaneous
  Country: NL (occurrence: NL)
  Receive Date: 20210405
  Receipt Date: 20210405
  Transmission Date: 20210717
  Serious: Yes (Death)
  Sender: FDA-Public Use
  Company Number: NL-TEVA-2021-NL-1896288

PATIENT
  Age: 45 Year
  Sex: Male
  Weight: 83.5 kg

DRUGS (8)
  1. OLANZAPINE TABLET 10MG / BRAND NAME NOT SPECIFIED [Suspect]
     Active Substance: OLANZAPINE
     Indication: HUNTINGTON^S DISEASE
     Dosage: 30 MILLIGRAM DAILY;  THERAPY END DATE :ASKU
     Dates: start: 2017
  2. NORTRIPTYLINE TABLET 25MG / NORTRILEN TABLET 25MG [Concomitant]
     Dosage: 25 MILLIGRAM DAILY; THERAPY START DATE :ASKU,THERAPY END DATE :ASKU
  3. ZUCLOPENTIXOL TABLET 10MG / CISORDINOL TABLET 10MG [Concomitant]
     Dosage: 30 MILLIGRAM DAILY; THERAPY START DATE :ASKU,THERAPY END DATE :ASKU
  4. MACROGOL/ZOUTEN PDR V DRANK (MOVIC/MOLAX/LAXT/GEN) / MOVICOLON POEDER [Concomitant]
     Dosage: POWDER FOR DRINK,THERAPY START DATE :ASKU,THERAPY END DATE :ASKU
  5. OXAZEPAM TABLET 10MG / BRAND NAME NOT SPECIFIED [Concomitant]
     Active Substance: OXAZEPAM
     Dosage: 10MG, 09H 1 TABLET; 20H 2 TABLETS, ZN 1 EXTRA TABLET THERAPY START DATE :ASKU,THERAPY END DATE :ASK
  6. COLECALCIFEROL DRANK 100.000IE/ML / D?CURA DRANK 100000IE AMPUL 1ML [Concomitant]
     Dosage: BEVERAGE, 100000 PE / ML (UNITS PER MILLILITER),THERAPY START DATE :ASKU,THERAPY END DATE :ASKU
  7. CITALOPRAM TABLET OMHULD 20MG / BRAND NAME NOT SPECIFIED [Concomitant]
     Dosage: 20 MG (MILLIGRAM),THERAPY START DATE :ASKU,THERAPY END DATE :ASKU
  8. PARACETAMOL TABLET  500MG / BRAND NAME NOT SPECIFIED [Concomitant]
     Dosage: 1000 MILLIGRAM DAILY; THERAPY START DATE :ASKU,THERAPY END DATE :ASKU

REACTIONS (1)
  - Embolism [Fatal]

NARRATIVE: CASE EVENT DATE: 20210304
